FAERS Safety Report 9973858 (Version 2)
Quarter: 2014Q1

REPORT INFORMATION
  Report Type: Spontaneous
  Country: JP (occurrence: JP)
  Receive Date: 20140306
  Receipt Date: 20140317
  Transmission Date: 20141002
  Serious: Yes (Death)
  Sender: FDA-Public Use
  Company Number: JP-PFIZER INC-2014063013

PATIENT
  Age: 82 Year
  Sex: Male

DRUGS (4)
  1. CELECOX [Suspect]
     Indication: SPONDYLOLISTHESIS
     Dosage: 200 MG, DAILY
     Route: 048
  2. HARNAL D [Suspect]
     Indication: BENIGN PROSTATIC HYPERPLASIA
     Dosage: 0.1 MG, 1X/DAY
     Route: 048
  3. MYONAL [Concomitant]
     Route: 048
  4. MOHRUS L [Concomitant]

REACTIONS (1)
  - Sudden death [Fatal]
